FAERS Safety Report 7939247 (Version 5)
Quarter: 2012Q4

REPORT INFORMATION
  Report Type: Report from Study
  Country: JP (occurrence: JP)
  Receive Date: 20110510
  Receipt Date: 20121008
  Transmission Date: 20130627
  Serious: Yes (Other)
  Sender: FDA-Public Use
  Company Number: JP-CELGENEUS-087-21880-11043478

PATIENT
  Age: 72 Year
  Sex: Male

DRUGS (46)
  1. REVLIMID [Suspect]
     Indication: MULTIPLE MYELOMA
     Dosage: 10 Milligram
     Route: 048
     Dates: start: 20101203, end: 20101223
  2. REVLIMID [Suspect]
     Dosage: 10 Milligram
     Route: 048
     Dates: start: 20110105, end: 20110118
  3. REVLIMID [Suspect]
     Dosage: 10 Milligram
     Route: 048
     Dates: start: 20110202, end: 20110215
  4. REVLIMID [Suspect]
     Dosage: 10 Milligram
     Route: 048
     Dates: start: 20110302, end: 20110315
  5. REVLIMID [Suspect]
     Dosage: 10 Milligram
     Route: 048
     Dates: start: 20110330, end: 20110413
  6. REVLIMID [Suspect]
     Dosage: 10 Milligram
     Route: 048
     Dates: start: 20110525, end: 20110531
  7. REVLIMID [Suspect]
     Dosage: 10 Milligram
     Route: 048
     Dates: start: 20110608, end: 20110613
  8. REVLIMID [Suspect]
     Dosage: 10 Milligram
     Route: 048
     Dates: start: 20110622, end: 20110627
  9. LENADEX [Suspect]
     Indication: MULTIPLE MYELOMA
     Dosage: 40 Milligram
     Route: 048
     Dates: start: 20101203, end: 20101203
  10. LENADEX [Suspect]
     Dosage: 40 Milligram
     Route: 048
     Dates: start: 20101210, end: 20101210
  11. LENADEX [Suspect]
     Dosage: 40 Milligram
     Route: 048
     Dates: start: 20101215, end: 20101215
  12. LENADEX [Suspect]
     Dosage: 40 Milligram
     Route: 048
     Dates: start: 20110105, end: 20110106
  13. LENADEX [Suspect]
     Dosage: 40 Milligram
     Route: 048
     Dates: start: 20110202, end: 20110203
  14. LENADEX [Suspect]
     Dosage: 40 Milligram
     Route: 048
     Dates: start: 20110302, end: 20110305
  15. LENADEX [Suspect]
     Dosage: 40 Milligram
     Route: 048
     Dates: start: 20110330, end: 20110331
  16. MAGLAX [Concomitant]
     Indication: DRUG USE FOR UNKNOWN INDICATION
     Dosage: 660 Milligram
     Route: 048
     Dates: start: 20081107
  17. MAGLAX [Concomitant]
     Dosage: 660 Milligram
     Route: 048
     Dates: start: 20110302
  18. URIEF [Concomitant]
     Indication: PROSTATE CANCER
     Dosage: 8 Milligram
     Route: 048
     Dates: start: 20091208
  19. URIEF [Concomitant]
     Dosage: 8 Milligram
     Route: 048
     Dates: start: 20110302
  20. URIEF [Concomitant]
     Dosage: 4 Milligram
     Route: 048
     Dates: start: 20110622
  21. HOKUNALIN:TAPE [Concomitant]
     Indication: DRUG USE FOR UNKNOWN INDICATION
     Dosage: 2 Milligram
     Route: 061
     Dates: start: 20090209
  22. HOKUNALIN:TAPE [Concomitant]
     Route: 061
     Dates: start: 20110105
  23. HOKUNALIN:TAPE [Concomitant]
     Dosage: 2 Milligram
     Route: 061
     Dates: start: 20110302
  24. SPIRIVA [Concomitant]
     Indication: DRUG USE FOR UNKNOWN INDICATION
     Dosage: 18 Microgram
     Route: 055
     Dates: start: 20090203
  25. SPIRIVA [Concomitant]
     Route: 055
     Dates: start: 20110105
  26. SPIRIVA [Concomitant]
     Dosage: 18 Microgram
     Route: 055
     Dates: start: 20110302
  27. ALOSITOL [Concomitant]
     Indication: DRUG USE FOR UNKNOWN INDICATION
     Dosage: 100 Milligram
     Route: 048
     Dates: start: 20060622
  28. TAKEPRON [Concomitant]
     Indication: PROPHYLAXIS
     Dosage: 30 Milligram
     Route: 048
     Dates: start: 20101203
  29. TAKEPRON [Concomitant]
     Indication: MULTIPLE MYELOMA
     Dosage: 30 Milligram
     Route: 048
     Dates: start: 20110302
  30. BAYASPIRIN [Concomitant]
     Indication: PROPHYLAXIS
     Dosage: 100 Milligram
     Route: 048
     Dates: start: 20101203, end: 20110201
  31. BAYASPIRIN [Concomitant]
     Indication: MULTIPLE MYELOMA
  32. LENDORMIN D [Concomitant]
     Indication: DRUG USE FOR UNKNOWN INDICATION
     Dosage: .25 Milligram
     Route: 048
     Dates: start: 20081115
  33. LENDORMIN D [Concomitant]
     Dosage: .25 Milligram
     Route: 048
     Dates: start: 20110302
  34. LASIX [Concomitant]
     Indication: MULTIPLE MYELOMA
     Dosage: 10 Milligram
     Route: 041
     Dates: start: 20101210, end: 20101210
  35. PRIMPERAN [Concomitant]
     Indication: PROPHYLAXIS
     Dosage: 10 Milligram
     Route: 041
     Dates: start: 20101211, end: 20101211
  36. LEUPLIN [Concomitant]
     Indication: DRUG USE FOR UNKNOWN INDICATION
     Dosage: 3.75 Milligram
     Route: 058
     Dates: start: 20101227, end: 20101227
  37. LEUPLIN [Concomitant]
     Dosage: 3.75 Milligram
     Route: 058
     Dates: start: 20110202, end: 20110202
  38. CIPROXAN [Concomitant]
     Indication: DRUG USE FOR UNKNOWN INDICATION
     Dosage: 600 Milligram
     Route: 048
     Dates: start: 20110119, end: 20110125
  39. ARICEPT [Concomitant]
     Indication: DEMENTIA ALZHEIMER^S TYPE
     Dosage: 3 Milligram
     Route: 048
     Dates: start: 20110318
  40. ARICEPT [Concomitant]
     Dosage: 5 Milligram
     Route: 048
     Dates: start: 20110622
  41. GASTER [Concomitant]
     Indication: PROPHYLAXIS
     Dosage: 20 Milligram
     Route: 048
     Dates: start: 20110427
  42. ENSURE [Concomitant]
     Indication: MULTIPLE MYELOMA
     Dosage: 750 milliliter
     Route: 048
     Dates: start: 20110608
  43. MYSER [Concomitant]
     Indication: DRUG USE FOR UNKNOWN INDICATION
     Route: 061
     Dates: start: 20100927
  44. PROPETO [Concomitant]
     Indication: DRUG USE FOR UNKNOWN INDICATION
     Route: 061
     Dates: start: 20101115
  45. ZINC OXIDE SIMPLE OINTMENT [Concomitant]
     Indication: DRUG USE FOR UNKNOWN INDICATION
     Route: 061
     Dates: start: 20100927, end: 20101024
  46. CASODEX [Concomitant]
     Indication: PROSTATE CANCER
     Route: 065
     Dates: start: 200808

REACTIONS (17)
  - Anaemia [Not Recovered/Not Resolved]
  - Platelet count decreased [Not Recovered/Not Resolved]
  - Delirium [Recovered/Resolved]
  - Urinary retention [Recovered/Resolved]
  - White blood cell count decreased [Not Recovered/Not Resolved]
  - Neutropenia [Recovered/Resolved]
  - Rash [Recovered/Resolved]
  - Constipation [Recovering/Resolving]
  - Upper respiratory tract inflammation [Recovered/Resolved]
  - Upper respiratory tract infection [Recovered/Resolved]
  - Decreased appetite [Recovered/Resolved]
  - Nasopharyngitis [Recovered/Resolved]
  - Pain in extremity [Not Recovered/Not Resolved]
  - Blood creatinine increased [Recovering/Resolving]
  - Decreased appetite [Not Recovered/Not Resolved]
  - Back pain [Recovering/Resolving]
  - Performance status decreased [Not Recovered/Not Resolved]
